FAERS Safety Report 7545797-7 (Version None)
Quarter: 2011Q2

REPORT INFORMATION
  Report Type: 
  Country: None (occurrence: None)
  Receive Date: 20110524
  Receipt Date: 20110304
  Transmission Date: 20111010
  Serious: No
  Sender: FDA-Public Use
  Company Number: 028830

PATIENT
  Sex: Female
  Weight: 73.9 kg

DRUGS (13)
  1. FOLIC ACID [Concomitant]
  2. VITAMIN C /00008001/ [Concomitant]
  3. CIMZIA [Suspect]
     Indication: RHEUMATOID ARTHRITIS
     Dosage: (400 MG, INDUCTION DOSE:0,2,4 DAY ZERO + SECOND WEEKLY ONLY SUBCUTANEOUS)
     Route: 058
     Dates: start: 20110217
  4. PLAQUENIL [Concomitant]
  5. CELEBREX [Concomitant]
  6. MULTI-VITAMINS [Concomitant]
  7. PREDNISONE [Concomitant]
  8. NEXIUM [Concomitant]
  9. WELLBUTRIN XL [Concomitant]
  10. VIVELLE [Concomitant]
  11. METHOTREXATE [Concomitant]
  12. OSCAL /01746701/ [Concomitant]
  13. SUPER B COMPLEX /01753401/ [Concomitant]

REACTIONS (2)
  - INJECTION SITE REACTION [None]
  - INJECTION SITE DISCOLOURATION [None]
